FAERS Safety Report 15998966 (Version 1)
Quarter: 2019Q1

REPORT INFORMATION
  Report Type: Spontaneous
  Country: GB (occurrence: GB)
  Receive Date: 20190223
  Receipt Date: 20190223
  Transmission Date: 20190418
  Serious: Yes (Other)
  Sender: FDA-Public Use
  Company Number: PHHY2019GB040219

PATIENT
  Age: 68 Year
  Sex: Female
  Weight: 82 kg

DRUGS (13)
  1. PIOGLITAZONE. [Suspect]
     Active Substance: PIOGLITAZONE
     Indication: PRODUCT USED FOR UNKNOWN INDICATION
     Dosage: 15 MG, UNK
     Route: 048
  2. FLUTIFORM [Concomitant]
     Active Substance: FLUTICASONE PROPIONATE\FORMOTEROL FUMARATE
     Indication: ASTHMA
     Dosage: 4 DF, QD (50MICROGRAMS/DOSE / 5MICROGRAMS)
     Route: 055
     Dates: start: 20181109
  3. MICONAZOLE. [Concomitant]
     Active Substance: MICONAZOLE
     Indication: PRODUCT USED FOR UNKNOWN INDICATION
     Dosage: 2 DF, QD (TO AFFECTED AREAS FOR UP TO 2 WEEKS)
     Route: 065
     Dates: start: 20181122
  4. ATORVASTATIN [Concomitant]
     Active Substance: ATORVASTATIN
     Indication: PRODUCT USED FOR UNKNOWN INDICATION
     Dosage: 20 MG, QD (NIGHT)
     Route: 065
     Dates: start: 20181109
  5. CLOBETASONE [Concomitant]
     Active Substance: CLOBETASONE
     Indication: PRODUCT USED FOR UNKNOWN INDICATION
     Dosage: UNK (APPLY THINLY ONCE OR TWICE DAILY)
     Route: 065
  6. DERMOL [Concomitant]
     Active Substance: BENZALKONIUM CHLORIDE\CHLORHEXIDINE HYDROCHLORIDE\ISOPROPYL MYRISTATE\PARAFFIN
     Indication: PRODUCT USED FOR UNKNOWN INDICATION
     Dosage: UNK (USE AS SOAP SUBSTITUTE)
     Route: 065
  7. METFORMIN [Concomitant]
     Active Substance: METFORMIN HYDROCHLORIDE
     Indication: PRODUCT USED FOR UNKNOWN INDICATION
     Dosage: 500 MG, UNK (1 ONCE A DAY FOR A WEEK THEN INCREASE TO 1 TWICE A DAY WITH MEALS)
     Route: 065
  8. EMPAGLIFLOZIN [Concomitant]
     Active Substance: EMPAGLIFLOZIN
     Indication: PRODUCT USED FOR UNKNOWN INDICATION
     Dosage: 10 MG, QD
     Route: 065
     Dates: start: 20181108
  9. LINAGLIPTIN [Concomitant]
     Active Substance: LINAGLIPTIN
     Indication: PRODUCT USED FOR UNKNOWN INDICATION
     Dosage: 5 MG, QD
     Route: 065
     Dates: start: 20181109
  10. FUROSEMIDE. [Concomitant]
     Active Substance: FUROSEMIDE
     Indication: PRODUCT USED FOR UNKNOWN INDICATION
     Dosage: 20 MG, UNK (MORNING)
     Route: 065
     Dates: start: 20181108
  11. AMLODIPINE [Concomitant]
     Active Substance: AMLODIPINE BESYLATE
     Indication: PRODUCT USED FOR UNKNOWN INDICATION
     Dosage: 5 MG, QD
     Route: 065
     Dates: start: 20181109
  12. RAMIPRIL. [Concomitant]
     Active Substance: RAMIPRIL
     Indication: PRODUCT USED FOR UNKNOWN INDICATION
     Dosage: 10 MG, QD
     Route: 065
     Dates: start: 20181109
  13. BALNEUM PLUS [Concomitant]
     Indication: DRY SKIN
     Dosage: UNK
     Route: 065

REACTIONS (3)
  - Pericardial effusion [Recovering/Resolving]
  - Dyspnoea [Recovering/Resolving]
  - Cardiac failure [Recovering/Resolving]

NARRATIVE: CASE EVENT DATE: 20181019
